FAERS Safety Report 13019855 (Version 1)
Quarter: 2016Q4

REPORT INFORMATION
  Report Type: Spontaneous
  Country: US (occurrence: US)
  Receive Date: 20161212
  Receipt Date: 20161212
  Transmission Date: 20170207
  Serious: No
  Sender: FDA-Public Use
  Company Number: US-ROCHE-1759072

PATIENT

DRUGS (1)
  1. ACTEMRA [Suspect]
     Active Substance: TOCILIZUMAB
     Indication: PRODUCT USED FOR UNKNOWN INDICATION
     Dosage: TOCILIZUMAB PRE FILLED SYRINGES STORED IN REFRIGERATOR REACHED TO 50 DEGREES SEVERAL HOURS
     Route: 065

REACTIONS (3)
  - Intercepted medication error [Unknown]
  - No adverse event [Unknown]
  - Incorrect product storage [Unknown]
